FAERS Safety Report 5895081-2 (Version None)
Quarter: 2008Q3

REPORT INFORMATION
  Report Type: 
  Country: None (occurrence: None)
  Receive Date: 20080924
  Receipt Date: 20080911
  Transmission Date: 20090109
  Serious: Yes (Other)
  Sender: FDA-Public Use
  Company Number: FR-PFIZER INC-2008071756

PATIENT
  Age: 46 Year
  Sex: Female

DRUGS (3)
  1. LYRICA [Suspect]
     Indication: PAIN
     Route: 048
     Dates: start: 20080101
  2. ALL OTHER THERAPEUTIC PRODUCTS [Suspect]
     Route: 048
  3. LEVONORGESTREL [Concomitant]

REACTIONS (2)
  - ACNE [None]
  - PRURITUS [None]
